FAERS Safety Report 4320946-2 (Version None)
Quarter: 2004Q1

REPORT INFORMATION
  Report Type: 
  Country: None (occurrence: None)
  Receive Date: 20040318
  Receipt Date: 20040318
  Transmission Date: 20041129
  Serious: Yes (Hospitalization)
  Sender: FDA-Public Use
  Company Number: 04-03-0396

PATIENT
  Age: 58 Year
  Sex: Male

DRUGS (5)
  1. PROBENECID W/ COLCHICINE [Suspect]
     Indication: GOUT
     Dosage: 3 MG QD ORAL
     Route: 048
  2. ENALAPRIL MALEATE [Concomitant]
  3. FUROSEMIDE [Concomitant]
  4. DIGOXIN [Concomitant]
  5. CARVEDILOL [Concomitant]

REACTIONS (5)
  - CARDIAC MURMUR [None]
  - CHILLS [None]
  - RENAL FAILURE [None]
  - RESPIRATORY RATE INCREASED [None]
  - RHABDOMYOLYSIS [None]
